FAERS Safety Report 15556335 (Version 1)
Quarter: 2018Q4

REPORT INFORMATION
  Report Type: Spontaneous
  Country: FR (occurrence: FR)
  Receive Date: 20181026
  Receipt Date: 20181026
  Transmission Date: 20190205
  Serious: Yes (Hospitalization, Other)
  Sender: FDA-Public Use
  Company Number: FR-PFIZER INC-2018427530

PATIENT
  Age: 27 Year
  Sex: Male
  Weight: 110 kg

DRUGS (8)
  1. XEROQUEL [Suspect]
     Active Substance: QUETIAPINE FUMARATE
     Dosage: 300 MG, UNK
     Route: 048
     Dates: start: 20180808, end: 20180808
  2. DEPAKOTE [Suspect]
     Active Substance: DIVALPROEX SODIUM
     Dosage: UNK
     Route: 048
     Dates: start: 20180808, end: 20180808
  3. PRAVASTATIN SODIUM. [Concomitant]
     Active Substance: PRAVASTATIN SODIUM
  4. METFORMIN [Concomitant]
     Active Substance: METFORMIN HYDROCHLORIDE
  5. VENLAFAXINE [Concomitant]
     Active Substance: VENLAFAXINE HYDROCHLORIDE
  6. PARACETAMOL [Suspect]
     Active Substance: ACETAMINOPHEN
     Route: 048
     Dates: start: 20180808, end: 20180808
  7. ALPRAZOLAM. [Suspect]
     Active Substance: ALPRAZOLAM
     Dosage: 15 MG, UNK
     Route: 048
     Dates: start: 20180808, end: 20180808
  8. ZOPICLONE [Suspect]
     Active Substance: ZOPICLONE
     Dosage: 300 MG, UNK
     Route: 048
     Dates: start: 20180808, end: 20180808

REACTIONS (7)
  - Suicide attempt [Recovered/Resolved]
  - Hepatocellular injury [Recovered/Resolved]
  - Coma [Recovered/Resolved]
  - Intentional overdose [Recovered/Resolved]
  - Metabolic acidosis [Recovered/Resolved]
  - Disease recurrence [Recovered/Resolved]
  - Toxicity to various agents [Recovered/Resolved]

NARRATIVE: CASE EVENT DATE: 20180808
